FAERS Safety Report 5477769-0 (Version None)
Quarter: 2007Q4

REPORT INFORMATION
  Report Type: 
  Country: None (occurrence: None)
  Receive Date: 20071002
  Receipt Date: 20071002
  Transmission Date: 20080405
  Serious: Yes (Hospitalization)
  Sender: FDA-Public Use
  Company Number: None

PATIENT
  Age: 30 Year
  Sex: Female
  Weight: 56.6996 kg

DRUGS (2)
  1. ULTRAM ER [Suspect]
     Indication: BACK PAIN
     Dosage: 1 TABLET DAILY PO
     Route: 048
     Dates: start: 20070101, end: 20070601
  2. TRAMADOL HCL [Suspect]
     Dosage: 1 TABLET 4 TIMES DAILY PO
     Route: 048

REACTIONS (2)
  - GRAND MAL CONVULSION [None]
  - HALLUCINATION [None]
